FAERS Safety Report 4731471-9 (Version None)
Quarter: 2005Q3

REPORT INFORMATION
  Report Type: 
  Country: None (occurrence: None)
  Receive Date: 20050801
  Receipt Date: 20050801
  Transmission Date: 20060218
  Serious: Yes (Life-Threatening)
  Sender: FDA-Public Use
  Company Number: None

PATIENT
  Age: 62 Year
  Sex: Male
  Weight: 72 kg

DRUGS (2)
  1. LOVENOX [Suspect]
     Indication: DEEP VEIN THROMBOSIS
     Dosage: 75MG   Q12H   SUBCUTANEOUS;  50MG DAILY SUBCUTANEOUS
     Route: 058
     Dates: start: 20040707, end: 20040714
  2. LOVENOX [Suspect]
     Indication: DEEP VEIN THROMBOSIS
     Dosage: 75MG   Q12H   SUBCUTANEOUS;  50MG DAILY SUBCUTANEOUS
     Route: 058
     Dates: start: 20040714, end: 20040813

REACTIONS (1)
  - GASTROINTESTINAL HAEMORRHAGE [None]
